FAERS Safety Report 5452083-8 (Version None)
Quarter: 2007Q3

REPORT INFORMATION
  Report Type: 
  Country: None (occurrence: None)
  Receive Date: 20070801
  Receipt Date: 20070119
  Transmission Date: 20080115
  Serious: Yes (Other)
  Sender: FDA-Public Use
  Company Number: 33757

PATIENT
  Sex: Female
  Weight: 56.6996 kg

DRUGS (2)
  1. MIDAZOLAM HCL [Suspect]
     Indication: SEDATION
     Dosage: 8.5MG/IV
     Route: 042
     Dates: start: 20070119
  2. ALESSE [Concomitant]

REACTIONS (1)
  - DRUG INEFFECTIVE [None]
